FAERS Safety Report 9238962 (Version 1)
Quarter: 2013Q2

REPORT INFORMATION
  Report Type: Spontaneous
  Country: US (occurrence: US)
  Receive Date: 20130418
  Receipt Date: 20130418
  Transmission Date: 20140414
  Serious: Yes (Other)
  Sender: FDA-Public Use
  Company Number: US-SANOFI-AVENTIS-2013SA038828

PATIENT
  Age: 50 Year
  Sex: Female
  Weight: 120 kg

DRUGS (6)
  1. PLAVIX [Suspect]
     Dates: start: 200001, end: 2004
  2. PLAVIX [Suspect]
     Dates: start: 200504
  3. ASPIRIN [Concomitant]
     Dates: start: 2003
  4. ASPIRIN [Concomitant]
     Dates: start: 2000, end: 2003
  5. TRICOR [Concomitant]
     Indication: BLOOD CHOLESTEROL
  6. ATENOLOL [Concomitant]
     Dates: start: 200504

REACTIONS (8)
  - Dyspnoea [Unknown]
  - Coronary arterial stent insertion [Unknown]
  - Hemiparesis [Unknown]
  - Gait disturbance [Unknown]
  - Thrombosis [Unknown]
  - Cerebrovascular accident [Unknown]
  - Myocardial infarction [Unknown]
  - Weight decreased [Unknown]
